FAERS Safety Report 14204585 (Version 1)
Quarter: 2017Q4

REPORT INFORMATION
  Report Type: Spontaneous
  Country: US (occurrence: None)
  Receive Date: 20171117
  Receipt Date: 20171117
  Transmission Date: 20180321
  Serious: No
  Sender: FDA-Public Use
  Company Number: None

PATIENT
  Age: 54 Year
  Sex: Male

DRUGS (1)
  1. TRENBOLONE-ACETATE [Suspect]
     Active Substance: TRENBOLONE ACETATE
     Dates: start: 201107, end: 20130701

REACTIONS (11)
  - Blood bilirubin increased [None]
  - Drug-induced liver injury [None]
  - Cholestasis [None]
  - Nausea [None]
  - Vomiting [None]
  - Headache [None]
  - Ocular icterus [None]
  - Hepatomegaly [None]
  - Hepatitis C virus test positive [None]
  - Pruritus [None]
  - Hepatic steatosis [None]

NARRATIVE: CASE EVENT DATE: 20130724
